FAERS Safety Report 11129053 (Version 1)
Quarter: 2015Q2

REPORT INFORMATION
  Report Type: Spontaneous
  Country: US (occurrence: US)
  Receive Date: 20150521
  Receipt Date: 20150521
  Transmission Date: 20150821
  Serious: Yes (Hospitalization)
  Sender: FDA-Public Use
  Company Number: US-MALLINCKRODT-QSC-2014-0213

PATIENT
  Age: 53 Year
  Sex: Male
  Weight: 97.51 kg

DRUGS (8)
  1. ZOLPIDEM [Concomitant]
     Active Substance: ZOLPIDEM\ZOLPIDEM TARTRATE
     Dosage: UNK
  2. LISINOPRIL. [Concomitant]
     Active Substance: LISINOPRIL
     Dosage: UNK
  3. PREDNISONE. [Concomitant]
     Active Substance: PREDNISONE
     Dosage: UNK
  4. METOPROLOL [Concomitant]
     Active Substance: METOPROLOL
     Dosage: UNK
  5. VICODIN [Concomitant]
     Active Substance: ACETAMINOPHEN\HYDROCODONE BITARTRATE
     Dosage: UNK
  6. H.P. ACTHAR [Suspect]
     Active Substance: CORTICOTROPIN
     Indication: GLOMERULONEPHRITIS MINIMAL LESION
     Dosage: 80 UNITS, BIW
     Route: 058
     Dates: start: 20131009, end: 20131110
  7. H.P. ACTHAR [Suspect]
     Active Substance: CORTICOTROPIN
     Dosage: 80 UNITS, BIW
     Route: 058
     Dates: start: 20140312
  8. DOCUSATE [Concomitant]
     Active Substance: DOCUSATE
     Dosage: UNK

REACTIONS (6)
  - Injection site infection [Recovered/Resolved]
  - Cellulitis [Recovered/Resolved]
  - Cellulitis [Unknown]
  - Localised infection [Recovering/Resolving]
  - Injection site discolouration [Recovering/Resolving]
  - Herpes zoster [Recovered/Resolved]

NARRATIVE: CASE EVENT DATE: 2013
